FAERS Safety Report 25726766 (Version 1)
Quarter: 2025Q3

REPORT INFORMATION
  Report Type: Report from Study
  Country: US (occurrence: US)
  Receive Date: 20250826
  Receipt Date: 20250826
  Transmission Date: 20251021
  Serious: Yes (Other)
  Sender: TAKEDA
  Company Number: US-TAKEDA-2025TUS052793

PATIENT
  Sex: Female
  Weight: 58.413 kg

DRUGS (14)
  1. VEDOLIZUMAB [Suspect]
     Active Substance: VEDOLIZUMAB
     Indication: Colitis ulcerative
  2. VEDOLIZUMAB [Suspect]
     Active Substance: VEDOLIZUMAB
     Indication: Colitis ulcerative
     Dosage: 108 MILLIGRAM, Q2WEEKS
     Dates: start: 20241218
  3. VEDOLIZUMAB [Suspect]
     Active Substance: VEDOLIZUMAB
  4. PROPRANOLOL HYDROCHLORIDE [Concomitant]
     Active Substance: PROPRANOLOL HYDROCHLORIDE
  5. IRON [Concomitant]
     Active Substance: IRON
  6. AMITRIPTYLINE HYDROCHLORIDE [Concomitant]
     Active Substance: AMITRIPTYLINE HYDROCHLORIDE
  7. PREDNISONE [Concomitant]
     Active Substance: PREDNISONE
  8. PROPRANOLOL [Concomitant]
     Active Substance: PROPRANOLOL HYDROCHLORIDE
     Indication: Migraine
     Dosage: 10 MILLIGRAM, BID
  9. VITAMIN D3 [Concomitant]
     Active Substance: CHOLECALCIFEROL
     Dosage: 125 MICROGRAM, QD
  10. DAPSONE [Concomitant]
     Active Substance: DAPSONE
     Route: 061
  11. QBREXZA [Concomitant]
     Active Substance: GLYCOPYRRONIUM TOSYLATE
     Dosage: 2.4 PERCENT, QD
     Route: 061
  12. MAGNESIUM [Concomitant]
     Active Substance: MAGNESIUM
     Dosage: 200 MILLIGRAM, QD
  13. RIZATRIPTAN [Concomitant]
     Active Substance: RIZATRIPTAN
  14. TRETINOIN [Concomitant]
     Active Substance: TRETINOIN
     Route: 061

REACTIONS (10)
  - Colitis ulcerative [Unknown]
  - Device leakage [Unknown]
  - Dry mouth [Unknown]
  - Hypoaesthesia [Unknown]
  - Stomatitis [Unknown]
  - Paraesthesia [Unknown]
  - Nasal congestion [Unknown]
  - Device malfunction [Recovering/Resolving]
  - Incorrect dose administered [Recovering/Resolving]
  - Product dose omission issue [Unknown]
